FAERS Safety Report 4906389-9 (Version None)
Quarter: 2006Q1

REPORT INFORMATION
  Report Type: 
  Country: None (occurrence: None)
  Receive Date: 20060207
  Receipt Date: 20060118
  Transmission Date: 20060701
  Serious: Yes (Other)
  Sender: FDA-Public Use
  Company Number: PT200512002609

PATIENT
  Age: 39 Year

DRUGS (2)
  1. OLANZAPINE [Suspect]
     Indication: SCHIZOPHRENIA
     Dosage: 10 MG, 3/D, ORAL
     Route: 048
     Dates: start: 20030101, end: 20050101
  2. ZARATOR ^PFIZER^ (ATORVASTATIN) [Concomitant]

REACTIONS (2)
  - OPTIC NEURITIS [None]
  - PRESCRIBED OVERDOSE [None]
